FAERS Safety Report 24668631 (Version 2)
Quarter: 2024Q4

REPORT INFORMATION
  Report Type: Spontaneous
  Country: US (occurrence: US)
  Receive Date: 20241127
  Receipt Date: 20241225
  Transmission Date: 20250115
  Serious: No
  Sender: Unknown Manufacturer
  Company Number: US-862174955-ML2024-06007

PATIENT
  Sex: Female

DRUGS (1)
  1. AMLODIPINE AND OLMESARTAN MEDOXOMIL [Suspect]
     Active Substance: AMLODIPINE BESYLATE\OLMESARTAN MEDOXOMIL
     Indication: Hypertension
     Route: 048
     Dates: start: 20241025

REACTIONS (2)
  - Alopecia [Unknown]
  - Product quality issue [Unknown]

NARRATIVE: CASE EVENT DATE: 20241026
